FAERS Safety Report 8587475-1 (Version None)
Quarter: 2012Q3

REPORT INFORMATION
  Report Type: 
  Country: None (occurrence: None)
  Receive Date: 20120810
  Receipt Date: 20120411
  Transmission Date: 20120928
  Serious: No
  Sender: FDA-Public Use
  Company Number: US-009507513-2012SP029522

PATIENT

DRUGS (3)
  1. FOSAMAX [Concomitant]
     Indication: PRODUCT USED FOR UNKNOWN INDICATION
     Dosage: UNK UNK, QW
  2. CLARITIN-D 24 HOUR [Suspect]
     Indication: PRODUCT USED FOR UNKNOWN INDICATION
     Dosage: UNK UNK, ONCE
     Route: 048
     Dates: start: 20120410
  3. CLARITIN-D 24 HOUR [Suspect]
     Indication: MEDICAL OBSERVATION

REACTIONS (3)
  - FEELING ABNORMAL [None]
  - HYPERHIDROSIS [None]
  - RESTLESSNESS [None]
